FAERS Safety Report 4699772-0 (Version None)
Quarter: 2005Q2

REPORT INFORMATION
  Report Type: 
  Country: None (occurrence: None)
  Receive Date: 20050623
  Receipt Date: 20050608
  Transmission Date: 20051028
  Serious: Yes (Hospitalization)
  Sender: FDA-Public Use
  Company Number: 2005-0008111

PATIENT
  Age: 51 Year
  Sex: Male

DRUGS (4)
  1. VIREAD [Suspect]
     Indication: HIV INFECTION
     Dosage: 300 MG, 1 IN 1 D, ORAL
     Route: 048
     Dates: start: 20040101
  2. EMTRIVA [Suspect]
     Indication: HIV INFECTION
     Dosage: 200 MG, 1 IN 1 D, ORAL
     Route: 048
     Dates: start: 20040101
  3. KALETRA [Concomitant]
  4. CELEXA [Concomitant]

REACTIONS (7)
  - BLOOD ALKALINE PHOSPHATASE INCREASED [None]
  - FALL [None]
  - HAEMOGLOBIN DECREASED [None]
  - HUMERUS FRACTURE [None]
  - PELVIC FRACTURE [None]
  - RED CELL DISTRIBUTION WIDTH INCREASED [None]
  - SHOULDER ARTHROPLASTY [None]
